FAERS Safety Report 9408703 (Version 3)
Quarter: 2013Q4

REPORT INFORMATION
  Report Type: Spontaneous
  Country: GB (occurrence: GB)
  Receive Date: 20130712
  Receipt Date: 20131031
  Transmission Date: 20140711
  Serious: Yes (Hospitalization)
  Sender: FDA-Public Use
  Company Number: GB-PFIZER INC-2013202137

PATIENT
  Age: 77 Year
  Sex: 0

DRUGS (11)
  1. TAZOCIN [Suspect]
     Indication: PNEUMONIA ASPIRATION
     Dosage: UNK
  2. CO-AMOXICLAV [Suspect]
     Indication: PNEUMONIA ASPIRATION
     Dosage: 1.2G STAT 1000MG/200MG POWDER FOR SOLUTION FOR INJECTION VIALS
     Route: 042
     Dates: start: 20110413, end: 20110413
  3. CLARITHROMYCIN [Suspect]
     Indication: LOWER RESPIRATORY TRACT INFECTION
     Dosage: 500 MG, SINGLE
     Route: 042
     Dates: start: 20110414, end: 20110414
  4. CLARITHROMYCIN [Suspect]
     Indication: PNEUMONIA ASPIRATION
     Dosage: 500 MG, 2X/DAY
     Route: 042
     Dates: start: 20110422, end: 20110428
  5. LEVOFLOXACIN [Suspect]
     Indication: PNEUMONIA ASPIRATION
     Dosage: 500 MG, SINGLE
     Route: 042
     Dates: start: 20110414, end: 20110414
  6. PIPERACILLIN/TAZOBACTAM [Suspect]
     Indication: RESPIRATORY FAILURE
     Dosage: 4.5 G, 3X/DAY
     Route: 041
     Dates: start: 20110414, end: 20110422
  7. PIPERACILLIN/TAZOBACTAM [Suspect]
     Dosage: 4.5 G, 3X/DAY
     Route: 041
     Dates: start: 20110429, end: 20110509
  8. CIPROFLOXACIN [Suspect]
     Indication: PSEUDOMONAS INFECTION
     Dosage: 500 MG, 2X/DAY
     Route: 048
     Dates: start: 20110428, end: 20110430
  9. AMOXICILLIN [Suspect]
     Dosage: 500 MG, 3X/DAY
     Route: 048
     Dates: start: 20100329, end: 20100405
  10. MEROPENEM [Suspect]
     Indication: LOWER RESPIRATORY TRACT INFECTION
     Dosage: 2 G, 3X/DAY
     Route: 041
     Dates: start: 20110422, end: 20110429
  11. TEICOPLANIN [Suspect]
     Indication: STAPHYLOCOCCAL INFECTION
     Dosage: 1.2G STAT AND 800MG ONCE DAILYSTAT AND ONE DOSE GIVEN, THEN STOPPED
     Dates: start: 20110422, end: 20110422

REACTIONS (9)
  - Clostridium difficile infection [Recovered/Resolved]
  - Pyrexia [Unknown]
  - C-reactive protein increased [Unknown]
  - White blood cell count increased [Unknown]
  - Diarrhoea [Unknown]
  - Abnormal faeces [Unknown]
  - Faeces discoloured [Unknown]
  - Lung consolidation [Unknown]
  - Pseudomonas infection [Unknown]
